FAERS Safety Report 11587023 (Version 1)
Quarter: 2015Q3

REPORT INFORMATION
  Report Type: Spontaneous
  Country: US (occurrence: US)
  Receive Date: 20150916
  Receipt Date: 20150916
  Transmission Date: 20151125
  Serious: No
  Sender: FDA-Public Use
  Company Number: US-ELI_LILLY_AND_COMPANY-US200802003974

PATIENT
  Sex: Female

DRUGS (6)
  1. BENTYL [Concomitant]
     Active Substance: DICYCLOMINE HYDROCHLORIDE
     Dosage: 20 MG, 4/D
  2. SOMA [Concomitant]
     Active Substance: CARISOPRODOL
     Dosage: 350 MG, 4/D
  3. BACLOFEN. [Concomitant]
     Active Substance: BACLOFEN
     Dosage: 10 MG, 3/D
  4. FORTEO [Suspect]
     Active Substance: TERIPARATIDE
     Dates: start: 200512, end: 200801
  5. KCL [Concomitant]
     Active Substance: POTASSIUM CHLORIDE
     Dosage: 40 MEQ, 3/D
  6. CHOLESTYRAMINE RESIN [Concomitant]
     Active Substance: CHOLESTYRAMINE
     Dosage: 4 G, 2/D

REACTIONS (5)
  - Blister [Recovering/Resolving]
  - Injection site vesicles [Recovering/Resolving]
  - Asthma [Recovered/Resolved]
  - Swelling face [Recovered/Resolved]
  - Urticaria [Recovering/Resolving]

NARRATIVE: CASE EVENT DATE: 200711
